FAERS Safety Report 25700029 (Version 1)
Quarter: 2025Q3

REPORT INFORMATION
  Report Type: Spontaneous
  Country: US (occurrence: None)
  Receive Date: 20250818
  Receipt Date: 20250818
  Transmission Date: 20251020
  Serious: Yes (Hospitalization)
  Sender: FDA-CTU
  Company Number: None

PATIENT
  Age: 47 Year
  Sex: Female
  Weight: 72 kg

DRUGS (1)
  1. GLYCINE\METHYLCOBALAMIN\SEMAGLUTIDE [Suspect]
     Active Substance: GLYCINE\METHYLCOBALAMIN\SEMAGLUTIDE
     Indication: Weight decreased
     Dosage: FREQUENCY : WEEKLY;?
     Route: 058
     Dates: start: 20250814, end: 20250815

REACTIONS (3)
  - Liver function test increased [None]
  - Product label confusion [None]
  - Incorrect dose administered [None]

NARRATIVE: CASE EVENT DATE: 20250815
